FAERS Safety Report 19029943 (Version 1)
Quarter: 2021Q1

REPORT INFORMATION
  Report Type: Spontaneous
  Country: US (occurrence: US)
  Receive Date: 20210318
  Receipt Date: 20210318
  Transmission Date: 20210420
  Serious: Yes (Hospitalization, Other)
  Sender: FDA-Public Use
  Company Number: NVSC2021US052823

PATIENT
  Age: 21 Year
  Sex: Male
  Weight: 71.2 kg

DRUGS (4)
  1. KYMRIAH [Suspect]
     Active Substance: TISAGENLECLEUCEL
     Indication: ACUTE LYMPHOCYTIC LEUKAEMIA
     Dosage: UNK
     Route: 041
     Dates: start: 20200911
  2. VANCOMYCIN [Concomitant]
     Active Substance: VANCOMYCIN
     Indication: NEUTROPENIA
     Dosage: 15 MG/KG, Q8H
     Route: 042
     Dates: start: 20200915, end: 20200917
  3. CEFEPIME [Concomitant]
     Active Substance: CEFEPIME HYDROCHLORIDE
     Indication: NEUTROPENIA
     Dosage: 2000 MG, Q8H
     Route: 042
     Dates: start: 20200915, end: 20200920
  4. KEPPRA [Concomitant]
     Active Substance: LEVETIRACETAM
     Indication: SEIZURE PROPHYLAXIS
     Dosage: 500 MG, BID
     Route: 048
     Dates: start: 20200915, end: 20200921

REACTIONS (5)
  - Hypoxia [Recovering/Resolving]
  - Hypotension [Recovering/Resolving]
  - Cytokine release syndrome [Recovered/Resolved]
  - Blood fibrinogen increased [Unknown]
  - Pyrexia [Recovering/Resolving]

NARRATIVE: CASE EVENT DATE: 20200915
